FAERS Safety Report 11038602 (Version 1)
Quarter: 2015Q2

REPORT INFORMATION
  Report Type: Spontaneous
  Country: US (occurrence: US)
  Receive Date: 20150416
  Receipt Date: 20150416
  Transmission Date: 20150821
  Serious: Yes (Other)
  Sender: FDA-Public Use
  Company Number: US-GLAXOSMITHKLINE-US2015GSK050203

PATIENT
  Sex: Female
  Weight: 77.55 kg

DRUGS (7)
  1. ANORO ELLIPTA [Concomitant]
     Active Substance: UMECLIDINIUM BROMIDE\VILANTEROL TRIFENATATE
  2. ATROVENT [Concomitant]
     Active Substance: IPRATROPIUM BROMIDE
  3. PROVENTIL [Concomitant]
     Active Substance: ALBUTEROL
  4. ADVAIR DISKUS [Suspect]
     Active Substance: FLUTICASONE PROPIONATE\SALMETEROL XINAFOATE
     Indication: CHRONIC OBSTRUCTIVE PULMONARY DISEASE
     Dosage: UNK
  5. IPRATROPIUM [Concomitant]
     Active Substance: IPRATROPIUM
  6. VENTOLIN [Concomitant]
     Active Substance: ALBUTEROL SULFATE
  7. DELTASONE [Concomitant]
     Active Substance: PREDNISONE

REACTIONS (9)
  - Productive cough [Not Recovered/Not Resolved]
  - Dyspnoea exertional [Unknown]
  - Hypoxia [Unknown]
  - Cough [Not Recovered/Not Resolved]
  - Drug ineffective [Unknown]
  - Oxygen saturation decreased [Unknown]
  - Dyspnoea [Not Recovered/Not Resolved]
  - Chest discomfort [Unknown]
  - Wheezing [Not Recovered/Not Resolved]
